FAERS Safety Report 4831410-6 (Version None)
Quarter: 2005Q4

REPORT INFORMATION
  Report Type: 
  Country: None (occurrence: None)
  Receive Date: 20051114
  Receipt Date: 20051026
  Transmission Date: 20060501
  Serious: Yes (Hospitalization)
  Sender: FDA-Public Use
  Company Number: DSA_27358_2005

PATIENT
  Age: 90 Year
  Sex: Male

DRUGS (11)
  1. DILTIAZEM HYDROCHLORIDE [Suspect]
     Dosage: DF PO
     Route: 047
     Dates: start: 20040101
  2. PLAVIX [Suspect]
     Dosage: 75 MG QD PO
     Route: 048
     Dates: start: 20050101, end: 20050822
  3. TADENAN [Suspect]
     Dosage: 50 MG QD PO
     Route: 048
     Dates: start: 20040101
  4. ALLOPURINOL [Suspect]
     Dosage: 200 MG QD PO
     Route: 048
     Dates: start: 20040101, end: 20050819
  5. COVERSYL [Suspect]
     Dosage: 1 TAB BID PO
     Route: 048
     Dates: start: 20040101, end: 20050822
  6. TAHOR [Suspect]
     Dosage: 1 TAB Q DAY PO
     Route: 048
     Dates: start: 20040101, end: 20050819
  7. SERMION [Concomitant]
  8. VASTAREL [Concomitant]
  9. DAFLON [Concomitant]
  10. DI-ANTALVIC [Concomitant]
  11. AMOXICILLIN AND CLAVULANATE POTASSIUM [Concomitant]

REACTIONS (5)
  - AGRANULOCYTOSIS [None]
  - FALL [None]
  - NEUTROPHIL COUNT ABNORMAL [None]
  - PYREXIA [None]
  - RENAL IMPAIRMENT [None]
